FAERS Safety Report 9000763 (Version 2)
Quarter: 2013Q1

REPORT INFORMATION
  Report Type: Spontaneous
  Country: IE (occurrence: IE)
  Receive Date: 20130107
  Receipt Date: 20130110
  Transmission Date: 20140127
  Serious: Yes (Death, Other)
  Sender: FDA-Public Use
  Company Number: PHFR2013IE000490

PATIENT
  Age: 57 Year
  Sex: Male

DRUGS (12)
  1. CLOZARIL [Suspect]
     Indication: SCHIZOAFFECTIVE DISORDER
     Dosage: 400 MG, DAILY (150MG MANE AND 250MG NOCTE)
     Route: 048
     Dates: start: 20111222
  2. DIAMICRON [Concomitant]
  3. LIPITOR [Concomitant]
  4. PROTIUM [Concomitant]
  5. DUOPLAVIN [Concomitant]
  6. METFORMIN [Concomitant]
  7. SERETIDE [Concomitant]
  8. FOLIC ACID [Concomitant]
  9. SPIRIVA [Concomitant]
  10. VALPROATE SODIUM [Concomitant]
  11. FUROSEMIDE [Concomitant]
  12. RAMIPRIL [Concomitant]

REACTIONS (2)
  - Acute myocardial infarction [Fatal]
  - Coronary artery disease [Unknown]
